FAERS Safety Report 4828103-8 (Version None)
Quarter: 2005Q4

REPORT INFORMATION
  Report Type: 
  Country: None (occurrence: None)
  Receive Date: 20051114
  Receipt Date: 20051114
  Transmission Date: 20060501
  Serious: Yes (Other)
  Sender: FDA-Public Use
  Company Number: None

PATIENT
  Age: 61 Year
  Sex: Female

DRUGS (11)
  1. TRILEPTAL [Suspect]
     Indication: MOOD ALTERED
     Dosage: 600 MG TID PO
     Route: 048
     Dates: start: 20050825, end: 20050901
  2. RISPERDAL [Concomitant]
  3. COGENTIN [Concomitant]
  4. GLUCOPHAGE [Concomitant]
  5. LOPRESSOR [Concomitant]
  6. AVANDIA [Concomitant]
  7. GLUCOTROL [Concomitant]
  8. NORVASC [Concomitant]
  9. PLAVIX [Concomitant]
  10. MONOPRIL [Concomitant]
  11. LAMICTAL [Concomitant]

REACTIONS (1)
  - HYPONATRAEMIA [None]
